FAERS Safety Report 25283785 (Version 5)
Quarter: 2025Q3

REPORT INFORMATION
  Report Type: Spontaneous
  Country: EU (occurrence: EU)
  Receive Date: 20250508
  Receipt Date: 20250714
  Transmission Date: 20251020
  Serious: Yes (Hospitalization, Other)
  Sender: MYLAN
  Company Number: EU-SANDOZ-SDZ2025IT024403

PATIENT
  Age: 51 Year
  Sex: Female

DRUGS (16)
  1. ARIPIPRAZOLE [Interacting]
     Active Substance: ARIPIPRAZOLE
     Indication: Psychotic disorder
     Dosage: 10 MILLIGRAM, QD (10 MG/DAYCASE 1)
  2. ARIPIPRAZOLE [Interacting]
     Active Substance: ARIPIPRAZOLE
     Indication: Depression
  3. ARIPIPRAZOLE [Interacting]
     Active Substance: ARIPIPRAZOLE
     Indication: Psychiatric symptom
  4. VIMPAT [Interacting]
     Active Substance: LACOSAMIDE
     Indication: Partial seizures with secondary generalisation
     Dosage: 200 MILLIGRAM, BID (400 MILLIGRAM, QD, 200 MG, BID)
  5. VIMPAT [Interacting]
     Active Substance: LACOSAMIDE
     Indication: Seizure
     Dosage: 100 MILLIGRAM, QD (100 MG IN THE EVENING.)
  6. VIMPAT [Interacting]
     Active Substance: LACOSAMIDE
     Indication: Generalised tonic-clonic seizure
     Dosage: 50 MILLIGRAM, BID (50 MG BID IN THE EDCASE 2)
  7. VIMPAT [Interacting]
     Active Substance: LACOSAMIDE
     Indication: Seizure prophylaxis
     Dosage: 200 MILLIGRAM, QD
     Dates: start: 20240726
  8. VIMPAT [Interacting]
     Active Substance: LACOSAMIDE
     Indication: Partial seizures with secondary generalisation
     Dosage: 400 MILLIGRAM, QD
     Dates: start: 20240726
  9. VIMPAT [Interacting]
     Active Substance: LACOSAMIDE
     Dosage: 100 MILLIGRAM, BID, 2X/DAY (BID), REDUCED TO 100 MG
     Dates: start: 20240727
  10. VIMPAT [Interacting]
     Active Substance: LACOSAMIDE
     Dosage: 50 MILLIGRAM, QD
     Dates: start: 20240728, end: 20240729
  11. FLUVOXAMINE MALEATE [Interacting]
     Active Substance: FLUVOXAMINE MALEATE
     Indication: Psychotic disorder
     Dosage: 100 MILLIGRAM, QD (100 MG/DAYCASE 1)
  12. FLUVOXAMINE MALEATE [Interacting]
     Active Substance: FLUVOXAMINE MALEATE
     Indication: Depression
  13. FLUVOXAMINE MALEATE [Interacting]
     Active Substance: FLUVOXAMINE MALEATE
     Indication: Psychiatric symptom
  14. DIAZEPAM [Concomitant]
     Active Substance: DIAZEPAM
     Indication: Partial seizures with secondary generalisation
  15. DIAZEPAM [Concomitant]
     Active Substance: DIAZEPAM
     Indication: Seizure
  16. DIAZEPAM [Concomitant]
     Active Substance: DIAZEPAM
     Indication: Generalised tonic-clonic seizure

REACTIONS (4)
  - Blood creatine phosphokinase increased [Recovered/Resolved]
  - Transaminases increased [Recovered/Resolved]
  - Rhabdomyolysis [Recovered/Resolved]
  - Drug interaction [Unknown]
